FAERS Safety Report 10067434 (Version 3)
Quarter: 2014Q2

REPORT INFORMATION
  Report Type: Report from Study
  Country: GB (occurrence: GB)
  Receive Date: 20140409
  Receipt Date: 20140603
  Transmission Date: 20141212
  Serious: Yes (Hospitalization)
  Sender: FDA-Public Use
  Company Number: GB-ROCHE-1378038

PATIENT
  Age: 87 Year
  Sex: Female

DRUGS (6)
  1. RANIBIZUMAB [Suspect]
     Indication: PRODUCT USED FOR UNKNOWN INDICATION
     Dosage: DATE OF LAST DOSE PRIOR TO EVENT: 19/SEP/2012.
     Route: 065
     Dates: start: 20120718
  2. RANIBIZUMAB [Suspect]
     Route: 065
     Dates: start: 20121128
  3. LISINOPRIL [Concomitant]
     Indication: PRODUCT USED FOR UNKNOWN INDICATION
     Route: 065
     Dates: start: 2004
  4. BISOPROLOL [Concomitant]
     Indication: PRODUCT USED FOR UNKNOWN INDICATION
     Route: 065
     Dates: start: 20121205
  5. PARACETAMOL [Concomitant]
     Route: 065
     Dates: start: 2003
  6. ISOPROPYL MYRISTATE/PARAFFIN [Concomitant]
     Route: 065
     Dates: start: 20121008

REACTIONS (6)
  - Hyponatraemia [Recovered/Resolved]
  - Angiopathy [Unknown]
  - Fall [Unknown]
  - Hallucination [Unknown]
  - Urinary tract infection [Unknown]
  - Eczema [Unknown]
